FAERS Safety Report 4723289-8 (Version None)
Quarter: 2005Q3

REPORT INFORMATION
  Report Type: 
  Country: None (occurrence: None)
  Receive Date: 20050719
  Receipt Date: 20041014
  Transmission Date: 20060218
  Serious: Yes (Hospitalization)
  Sender: FDA-Public Use
  Company Number: 206342

PATIENT
  Age: 46 Year
  Sex: Female
  Weight: 57.6068 kg

DRUGS (10)
  1. AVONEX [Suspect]
     Indication: MULTIPLE SCLEROSIS
     Dosage: 30 UG; QW; IM
     Route: 030
     Dates: start: 20020101, end: 20030801
  2. AVONEX [Suspect]
     Indication: MULTIPLE SCLEROSIS
     Dosage: 30 UG; QW; IM
     Route: 030
     Dates: start: 20030801, end: 20040801
  3. BACLOFEN [Concomitant]
  4. FOLIC ACID [Concomitant]
  5. CLONAZEPAM [Concomitant]
  6. PREVACID [Concomitant]
  7. AMBIEN [Concomitant]
  8. DITROPAN [Concomitant]
  9. PREDNISONE [Concomitant]
  10. CELEXA [Concomitant]

REACTIONS (1)
  - MENORRHAGIA [None]
